FAERS Safety Report 11011312 (Version 2)
Quarter: 2015Q2

REPORT INFORMATION
  Report Type: Report from Study
  Country: CA (occurrence: CA)
  Receive Date: 20150410
  Receipt Date: 20150505
  Transmission Date: 20150821
  Serious: Yes (Other)
  Sender: FDA-Public Use
  Company Number: PHHY2015CA013594

PATIENT
  Age: 25 Year
  Sex: Female

DRUGS (1)
  1. CLOZARIL [Suspect]
     Active Substance: CLOZAPINE
     Indication: SCHIZOPHRENIA
     Dosage: UNK
     Route: 048
     Dates: start: 20100401

REACTIONS (6)
  - Myocardial ischaemia [Unknown]
  - Electrocardiogram repolarisation abnormality [Unknown]
  - Sinus tachycardia [Unknown]
  - Antipsychotic drug level increased [Unknown]
  - Left ventricular failure [Unknown]
  - Electrocardiogram T wave inversion [Unknown]

NARRATIVE: CASE EVENT DATE: 20150404
